FAERS Safety Report 9444701 (Version 1)
Quarter: 2013Q3

REPORT INFORMATION
  Report Type: Spontaneous
  Country: IL (occurrence: IL)
  Receive Date: 20130807
  Receipt Date: 20130807
  Transmission Date: 20140515
  Serious: Yes (Other)
  Sender: FDA-Public Use
  Company Number: IL-PFIZER INC-2013227293

PATIENT
  Age: 43 Year
  Sex: Male

DRUGS (2)
  1. XALKORI [Suspect]
     Dosage: 250 MG, 2X/DAY
  2. XALKORI [Suspect]
     Dosage: 500 MG, 1X/DAY IN THE MORNING

REACTIONS (1)
  - Metastases to central nervous system [Recovered/Resolved]
